FAERS Safety Report 24306537 (Version 1)
Quarter: 2024Q3

REPORT INFORMATION
  Report Type: Spontaneous
  Country: DE (occurrence: DE)
  Receive Date: 20240911
  Receipt Date: 20240911
  Transmission Date: 20241016
  Serious: Yes (Hospitalization)
  Sender: JOHNSON AND JOHNSON
  Company Number: DE-JNJFOC-20240919548

PATIENT
  Age: 45 Year
  Sex: Female

DRUGS (2)
  1. SPRAVATO [Suspect]
     Active Substance: ESKETAMINE
     Indication: Depression
  2. SPRAVATO [Suspect]
     Active Substance: ESKETAMINE
     Dosage: LAST TREATMENT WAS ON 26-JUL-2024 (18TH TREATMENT SESSION).
     Dates: start: 20240726

REACTIONS (1)
  - Mania [Not Recovered/Not Resolved]

NARRATIVE: CASE EVENT DATE: 20240726
